FAERS Safety Report 5223751-8 (Version None)
Quarter: 2007Q1

REPORT INFORMATION
  Report Type: 
  Country: None (occurrence: None)
  Receive Date: 20070124
  Receipt Date: 20070117
  Transmission Date: 20070707
  Serious: Yes (Life-Threatening, Other)
  Sender: FDA-Public Use
  Company Number: HQWYE694217JAN07

PATIENT
  Age: 62 Year
  Sex: Male

DRUGS (8)
  1. AMIODARONE HCL [Suspect]
     Indication: ATRIAL FIBRILLATION
     Dosage: 300 MG 1X PER 1 DAY INTRAVENOUS
     Route: 042
     Dates: start: 20061212, end: 20061212
  2. CORDARONE [Concomitant]
  3. BISOPROLOL FUMARATE [Concomitant]
  4. IRBESARTAN [Concomitant]
  5. MODURETIC 5-50 [Concomitant]
  6. NORVASC [Concomitant]
  7. COUMADIN [Concomitant]
  8. HALCION [Concomitant]

REACTIONS (4)
  - CHOKING SENSATION [None]
  - HYPERHIDROSIS [None]
  - NAUSEA [None]
  - RASH [None]
